FAERS Safety Report 5590872-X (Version None)
Quarter: 2007Q4

REPORT INFORMATION
  Report Type: 
  Country: None (occurrence: None)
  Receive Date: 20071214
  Receipt Date: 20061117
  Transmission Date: 20080405
  Serious: Yes (Other)
  Sender: FDA-Public Use
  Company Number: S06-USA-04885-01

PATIENT
  Sex: Male

DRUGS (2)
  1. NAMENDA [Suspect]
  2. ARICEPT [Suspect]

REACTIONS (1)
  - DYSKINESIA [None]
